FAERS Safety Report 5829886-0 (Version None)
Quarter: 2008Q3

REPORT INFORMATION
  Report Type: 
  Country: None (occurrence: None)
  Receive Date: 20080729
  Receipt Date: 20080711
  Transmission Date: 20090109
  Serious: Yes (Other)
  Sender: FDA-Public Use
  Company Number: AEUSA200800154

PATIENT
  Age: 45 Year
  Sex: Male
  Weight: 63.5036 kg

DRUGS (6)
  1. PROLASTIN [Suspect]
     Indication: ALPHA-1 ANTI-TRYPSIN DEFICIENCY
     Dosage: 8 GM; QOW; IV
     Route: 042
     Dates: start: 20060101
  2. ADVAIR DISKUS 100/50 [Concomitant]
  3. SPIRIVA [Concomitant]
  4. ALBUTEROL [Concomitant]
  5. THEOPHYLLINE [Concomitant]
  6. ZOLPIDEM [Concomitant]

REACTIONS (2)
  - IRITIS [None]
  - VISUAL IMPAIRMENT [None]
